FAERS Safety Report 13207686 (Version 1)
Quarter: 2017Q1

REPORT INFORMATION
  Report Type: Spontaneous
  Country: NL (occurrence: NL)
  Receive Date: 20170209
  Receipt Date: 20170209
  Transmission Date: 20170428
  Serious: Yes (Life-Threatening)
  Sender: FDA-Public Use
  Company Number: PHHY2017NL018907

PATIENT
  Sex: Female

DRUGS (1)
  1. COSENTYX [Suspect]
     Active Substance: SECUKINUMAB
     Indication: PRODUCT USED FOR UNKNOWN INDICATION
     Dosage: 150 MG, UNK
     Route: 065

REACTIONS (9)
  - Dysphagia [Unknown]
  - Stomatitis [Unknown]
  - Dyspnoea [Unknown]
  - Pyrexia [Unknown]
  - Hypotension [Unknown]
  - Off label use [Unknown]
  - Malaise [Unknown]
  - Gait disturbance [Unknown]
  - Prescribed overdose [Unknown]
